FAERS Safety Report 10685126 (Version 1)
Quarter: 2014Q4

REPORT INFORMATION
  Report Type: Spontaneous
  Country: US (occurrence: None)
  Receive Date: 20141230
  Receipt Date: 20141230
  Transmission Date: 20150529
  Serious: Yes (Other)
  Sender: FDA-Public Use
  Company Number: None

PATIENT
  Sex: Female

DRUGS (1)
  1. MODAFINIL. [Suspect]
     Active Substance: MODAFINIL
     Indication: NARCOLEPSY
     Dosage: 400MG  DAILY  PO
     Route: 048
     Dates: start: 201309, end: 201310

REACTIONS (4)
  - Suicidal ideation [None]
  - Nausea [None]
  - Depression [None]
  - Headache [None]
